FAERS Safety Report 16981123 (Version 7)
Quarter: 2025Q2

REPORT INFORMATION
  Report Type: Report from Study
  Country: US (occurrence: US)
  Receive Date: 20191031
  Receipt Date: 20250514
  Transmission Date: 20250717
  Serious: No
  Sender: TAKEDA
  Company Number: US-SHIRE-US201935968

PATIENT
  Age: 59 Year
  Sex: Female
  Weight: 85 kg

DRUGS (35)
  1. HUMAN IMMUNOGLOBULIN G\HYALURONIDASE RECOMBINANT HUMAN [Suspect]
     Active Substance: HUMAN IMMUNOGLOBULIN G\HYALURONIDASE (HUMAN RECOMBINANT)
     Indication: Immunodeficiency common variable
     Dosage: 20 GRAM, Q2WEEKS
     Dates: start: 20160506
  2. HUMAN IMMUNOGLOBULIN G\HYALURONIDASE RECOMBINANT HUMAN [Suspect]
     Active Substance: HUMAN IMMUNOGLOBULIN G\HYALURONIDASE (HUMAN RECOMBINANT)
     Indication: Primary immunodeficiency syndrome
     Dosage: 40 GRAM, Q4WEEKS
  3. HUMAN IMMUNOGLOBULIN G\HYALURONIDASE RECOMBINANT HUMAN [Suspect]
     Active Substance: HUMAN IMMUNOGLOBULIN G\HYALURONIDASE (HUMAN RECOMBINANT)
     Dosage: 22.5 GRAM, Q2WEEKS
  4. HUMAN IMMUNOGLOBULIN G\HYALURONIDASE RECOMBINANT HUMAN [Suspect]
     Active Substance: HUMAN IMMUNOGLOBULIN G\HYALURONIDASE (HUMAN RECOMBINANT)
     Dosage: 40 GRAM, Q4WEEKS
     Dates: start: 20180604
  5. HUMAN IMMUNOGLOBULIN G\HYALURONIDASE RECOMBINANT HUMAN [Suspect]
     Active Substance: HUMAN IMMUNOGLOBULIN G\HYALURONIDASE (HUMAN RECOMBINANT)
     Dosage: 40 GRAM, Q4WEEKS
     Dates: start: 20180608
  6. HUMAN IMMUNOGLOBULIN G\HYALURONIDASE RECOMBINANT HUMAN [Suspect]
     Active Substance: HUMAN IMMUNOGLOBULIN G\HYALURONIDASE (HUMAN RECOMBINANT)
     Dosage: 40 GRAM, Q4WEEKS
     Dates: start: 20200605
  7. HUMAN IMMUNOGLOBULIN G\HYALURONIDASE RECOMBINANT HUMAN [Suspect]
     Active Substance: HUMAN IMMUNOGLOBULIN G\HYALURONIDASE (HUMAN RECOMBINANT)
  8. ACETAMINOPHEN [Concomitant]
     Active Substance: ACETAMINOPHEN
  9. DIPHENHYDRAMINE [Concomitant]
     Active Substance: DIPHENHYDRAMINE
  10. EPINEPHRINE [Concomitant]
     Active Substance: EPINEPHRINE
  11. LIDOCAINE [Concomitant]
     Active Substance: LIDOCAINE
  12. Lmx [Concomitant]
  13. CEFDINIR [Concomitant]
     Active Substance: CEFDINIR
  14. CRANBERRY [Concomitant]
     Active Substance: CRANBERRY
  15. CHLORPHENIRAMINE [Concomitant]
     Active Substance: CHLORPHENIRAMINE
  16. BACTRIM DS [Concomitant]
     Active Substance: SULFAMETHOXAZOLE\TRIMETHOPRIM
  17. ZOCOR [Concomitant]
     Active Substance: SIMVASTATIN
  18. XANAX [Concomitant]
     Active Substance: ALPRAZOLAM
  19. TRAMADOL HCL [Concomitant]
     Active Substance: TRAMADOL HYDROCHLORIDE
  20. OMEPRAZOLE [Concomitant]
     Active Substance: OMEPRAZOLE
  21. FISH OIL [Concomitant]
     Active Substance: FISH OIL
  22. METFORMIN HYDROCHLORIDE [Concomitant]
     Active Substance: METFORMIN HYDROCHLORIDE
  23. POTASSIUM CHLORIDE [Concomitant]
     Active Substance: POTASSIUM CHLORIDE
  24. CYCLOBENZAPRINE HYDROCHLORIDE [Concomitant]
     Active Substance: CYCLOBENZAPRINE HYDROCHLORIDE
  25. FIORICET [Concomitant]
     Active Substance: ACETAMINOPHEN\BUTALBITAL\CAFFEINE
  26. PROAIR HFA [Concomitant]
     Active Substance: ALBUTEROL SULFATE
  27. VOLTAREN [Concomitant]
     Active Substance: DICLOFENAC SODIUM
  28. MUCINEX [Concomitant]
     Active Substance: GUAIFENESIN
  29. ZYRTEC [Concomitant]
     Active Substance: CETIRIZINE HYDROCHLORIDE
  30. NASACORT [Concomitant]
     Active Substance: TRIAMCINOLONE ACETONIDE
  31. SODIUM CHLORIDE [Concomitant]
     Active Substance: SODIUM CHLORIDE
  32. POTASSIUM [Concomitant]
     Active Substance: POTASSIUM
  33. SINGULAIR [Concomitant]
     Active Substance: MONTELUKAST SODIUM
  34. SUDAFED [Concomitant]
     Active Substance: PSEUDOEPHEDRINE HYDROCHLORIDE
  35. MODERNA COVID-19 VACCINE [Concomitant]
     Active Substance: ELASOMERAN

REACTIONS (25)
  - Drug hypersensitivity [Recovering/Resolving]
  - Viral infection [Unknown]
  - Upper respiratory tract infection [Recovering/Resolving]
  - Bacterial infection [Unknown]
  - Fungal infection [Unknown]
  - Ear infection [Unknown]
  - Foot fracture [Unknown]
  - Infusion site papule [Unknown]
  - Infusion related reaction [Unknown]
  - Product dose omission issue [Unknown]
  - Inappropriate schedule of product administration [Unknown]
  - COVID-19 [Unknown]
  - Infusion site pain [Unknown]
  - Rash [Recovering/Resolving]
  - Trigger finger [Unknown]
  - Sinusitis [Unknown]
  - Bronchitis [Unknown]
  - Urinary tract infection [Not Recovered/Not Resolved]
  - Peripheral swelling [Unknown]
  - Antibody test abnormal [Unknown]
  - Tendon injury [Unknown]
  - Road traffic accident [Unknown]
  - Cough [Unknown]
  - Pain in extremity [Unknown]
  - Back pain [Unknown]

NARRATIVE: CASE EVENT DATE: 20191201
